FAERS Safety Report 15980938 (Version 3)
Quarter: 2019Q1

REPORT INFORMATION
  Report Type: Spontaneous
  Country: US (occurrence: US)
  Receive Date: 20190219
  Receipt Date: 20190318
  Transmission Date: 20190418
  Serious: Yes (Other)
  Sender: FDA-Public Use
  Company Number: US-PFIZER INC-2019068748

PATIENT
  Age: 50 Year
  Sex: Male

DRUGS (8)
  1. CISPLATIN. [Suspect]
     Active Substance: CISPLATIN
     Dosage: UNK, SINGLE
     Dates: start: 201406, end: 201406
  2. GEMCITABINE HYDROCHLORIDE. [Suspect]
     Active Substance: GEMCITABINE HYDROCHLORIDE
     Dosage: UNK (15% DOSE REDUCTION)
     Dates: start: 201512
  3. CISPLATIN. [Suspect]
     Active Substance: CISPLATIN
     Indication: TRANSITIONAL CELL CARCINOMA METASTATIC
     Dosage: 70 MG/M2, EVERY 3 WEEKS (ON DAY 1 EVERY 21 DAYS)
     Dates: start: 201403
  4. GEMCITABINE HYDROCHLORIDE. [Suspect]
     Active Substance: GEMCITABINE HYDROCHLORIDE
     Indication: TRANSITIONAL CELL CARCINOMA URETHRA
     Dosage: 1000 MG/M2, (DAYS 1 AND 8)
     Dates: start: 201403
  5. GEMCITABINE HYDROCHLORIDE. [Suspect]
     Active Substance: GEMCITABINE HYDROCHLORIDE
     Dosage: UNK (EMPIRICALLY REDUCED DOSE)
     Dates: start: 2016
  6. CISPLATIN. [Suspect]
     Active Substance: CISPLATIN
     Dosage: UNK, SINGLE
     Dates: start: 201405, end: 201405
  7. CISPLATIN. [Suspect]
     Active Substance: CISPLATIN
     Dosage: UNK (WITH A 15% DOSE REDUCTION)
     Dates: start: 201512
  8. PEMETREXED. [Suspect]
     Active Substance: PEMETREXED
     Indication: TRANSITIONAL CELL CARCINOMA METASTATIC
     Dosage: UNK, SINGLE
     Dates: start: 201406, end: 201406

REACTIONS (2)
  - Hepatitis C RNA increased [Recovered/Resolved]
  - Liver function test increased [Recovered/Resolved]

NARRATIVE: CASE EVENT DATE: 2014
